FAERS Safety Report 4471959-1 (Version None)
Quarter: 2004Q4

REPORT INFORMATION
  Report Type: 
  Country: None (occurrence: None)
  Receive Date: 20041007
  Receipt Date: 20040921
  Transmission Date: 20050328
  Serious: Yes (Hospitalization)
  Sender: FDA-Public Use
  Company Number: S04-FRA-00362-01

PATIENT
  Age: 15 Year
  Sex: Female

DRUGS (1)
  1. CITALOPRAM HYDROBROMIDE [Suspect]
     Dosage: 120 MG ONCE PO
     Route: 048
     Dates: start: 20040119, end: 20040119

REACTIONS (3)
  - INTENTIONAL OVERDOSE [None]
  - MALAISE [None]
  - SUICIDE ATTEMPT [None]
